FAERS Safety Report 16444861 (Version 7)
Quarter: 2020Q1

REPORT INFORMATION
  Report Type: Report from Study
  Country: CA (occurrence: CA)
  Receive Date: 20190618
  Receipt Date: 20200319
  Transmission Date: 20200409
  Serious: Yes (Hospitalization, Other)
  Sender: FDA-Public Use
  Company Number: PHHY2014CA185334

PATIENT
  Age: 73 Year
  Sex: Female

DRUGS (17)
  1. SANDOSTATIN LAR DEPOT [Suspect]
     Active Substance: OCTREOTIDE ACETATE
     Dosage: 20 MG, QMO (EVERY FOUR WEEKS)
     Route: 030
     Dates: start: 20141107
  2. LUTETIUM (LU 177) [Suspect]
     Active Substance: LUTETIUM LU-177
     Dosage: UNK
     Route: 065
     Dates: start: 20181210
  3. POTASSIUM CHLORIDE. [Concomitant]
     Active Substance: POTASSIUM CHLORIDE
     Indication: BLOOD POTASSIUM DECREASED
     Dosage: 600 MG, BIW
     Route: 065
     Dates: start: 20170703
  4. SANDOSTATIN LAR DEPOT [Suspect]
     Active Substance: OCTREOTIDE ACETATE
     Dosage: 60 MG, QMO(EVERY 28 DAYS)
     Route: 030
     Dates: start: 20141107
  5. FEMARA [Concomitant]
     Active Substance: LETROZOLE
     Indication: METASTATIC CARCINOID TUMOUR
     Dosage: 2.5 MG, QD (ONCE A DAY)
     Route: 048
     Dates: start: 2014
  6. DILAUDID [Suspect]
     Active Substance: HYDROMORPHONE HYDROCHLORIDE
     Dosage: UNK, TWICE 1/2 HOUR APART
     Route: 042
  7. SANDOSTATIN LAR DEPOT [Suspect]
     Active Substance: OCTREOTIDE ACETATE
     Dosage: 40 MG, QMO (EVERY FOUR WEEKS)
     Route: 030
     Dates: end: 20150721
  8. SANDOSTATIN LAR DEPOT [Suspect]
     Active Substance: OCTREOTIDE ACETATE
     Dosage: 60 MG, QMO (EVERY 28 DAYS)
     Route: 030
     Dates: start: 20160105
  9. MORPHINE [Suspect]
     Active Substance: MORPHINE
     Indication: PRODUCT USED FOR UNKNOWN INDICATION
     Route: 065
  10. SANDOSTATIN LAR DEPOT [Suspect]
     Active Substance: OCTREOTIDE ACETATE
     Dosage: 30 MG, QMO (EVERY FOUR WEEKS)
     Route: 030
  11. SANDOSTATIN LAR DEPOT [Suspect]
     Active Substance: OCTREOTIDE ACETATE
     Dosage: 50 MG, QMO (EVERY FOUR WEEKS)
     Route: 030
     Dates: start: 20150818, end: 20151208
  12. LUTETIUM (LU 177) [Suspect]
     Active Substance: LUTETIUM LU-177
     Dosage: UNK
     Route: 065
     Dates: start: 20190521
  13. DILAUDID [Suspect]
     Active Substance: HYDROMORPHONE HYDROCHLORIDE
     Indication: PRODUCT USED FOR UNKNOWN INDICATION
     Route: 065
  14. SANDOSTATIN [Suspect]
     Active Substance: OCTREOTIDE ACETATE
     Indication: METASTATIC CARCINOID TUMOUR
     Dosage: 100 UG, TID
     Route: 058
     Dates: start: 20141031, end: 201411
  15. SANDOSTATIN LAR DEPOT [Suspect]
     Active Substance: OCTREOTIDE ACETATE
     Indication: METASTATIC CARCINOID TUMOUR
     Dosage: 30 MG, QMO (MONTHLY)
     Route: 030
     Dates: start: 200907
  16. LUTETIUM (LU 177) [Suspect]
     Active Substance: LUTETIUM LU-177
     Indication: PRODUCT USED FOR UNKNOWN INDICATION
     Route: 065
  17. CEFTRIAXONE. [Concomitant]
     Active Substance: CEFTRIAXONE
     Indication: PRODUCT USED FOR UNKNOWN INDICATION
     Dosage: 2000 MG, QD
     Route: 042

REACTIONS (65)
  - Cystitis [Unknown]
  - Blood potassium decreased [Recovered/Resolved]
  - Metastases to liver [Unknown]
  - Body temperature decreased [Unknown]
  - Transient global amnesia [Unknown]
  - Renal cyst [Recovering/Resolving]
  - Paraesthesia [Recovering/Resolving]
  - Cardiac disorder [Unknown]
  - Influenza [Recovering/Resolving]
  - Lumbar spinal stenosis [Not Recovered/Not Resolved]
  - Melanocytic naevus [Unknown]
  - Abdominal pain lower [Recovered/Resolved]
  - Vomiting [Recovering/Resolving]
  - Facial paralysis [Recovered/Resolved]
  - Sepsis [Unknown]
  - Stress [Unknown]
  - Bowel movement irregularity [Recovering/Resolving]
  - Emphysema [Unknown]
  - Nausea [Recovered/Resolved]
  - Incorrect dose administered [Unknown]
  - Loss of consciousness [Unknown]
  - Malignant melanoma [Unknown]
  - Herpes zoster [Recovering/Resolving]
  - Blood pressure systolic increased [Unknown]
  - Neuralgia [Recovering/Resolving]
  - Diarrhoea [Unknown]
  - Heart rate decreased [Unknown]
  - Renal cancer [Unknown]
  - Asthenia [Unknown]
  - Musculoskeletal pain [Unknown]
  - Eye inflammation [Unknown]
  - Feeling abnormal [Unknown]
  - Dyspnoea [Recovering/Resolving]
  - Fall [Unknown]
  - Alopecia [Unknown]
  - Nasopharyngitis [Unknown]
  - Dizziness [Unknown]
  - Renal mass [Recovered/Resolved]
  - Second primary malignancy [Unknown]
  - Lower respiratory tract infection [Unknown]
  - Blood pressure increased [Unknown]
  - Rash [Recovered/Resolved]
  - Chills [Unknown]
  - Pyrexia [Unknown]
  - Breast cancer [Unknown]
  - Malignant neoplasm progression [Unknown]
  - Flushing [Not Recovered/Not Resolved]
  - Bronchitis [Unknown]
  - Blood sodium decreased [Unknown]
  - Blood chloride decreased [Unknown]
  - Blood potassium decreased [Unknown]
  - Abdominal pain [Recovering/Resolving]
  - Injection site mass [Unknown]
  - Back pain [Not Recovered/Not Resolved]
  - Arthralgia [Unknown]
  - Chest discomfort [Unknown]
  - Productive cough [Unknown]
  - Somnolence [Unknown]
  - Cough [Unknown]
  - Pain in extremity [Unknown]
  - Wheezing [Unknown]
  - Device malfunction [Recovered/Resolved]
  - Flatulence [Not Recovered/Not Resolved]
  - Constipation [Recovering/Resolving]
  - Diarrhoea [Recovered/Resolved]

NARRATIVE: CASE EVENT DATE: 20141205
